FAERS Safety Report 18263003 (Version 3)
Quarter: 2020Q4

REPORT INFORMATION
  Report Type: Spontaneous
  Country: JP (occurrence: JP)
  Receive Date: 20200914
  Receipt Date: 20201013
  Transmission Date: 20210113
  Serious: Yes (Other)
  Sender: FDA-Public Use
  Company Number: JP-JNJFOC-20200923230

PATIENT
  Age: 76 Year
  Sex: Female

DRUGS (1)
  1. DARZALEX [Suspect]
     Active Substance: DARATUMUMAB
     Indication: PRODUCT USED FOR UNKNOWN INDICATION
     Dosage: DOSE UNKNOWN
     Route: 041
     Dates: start: 20200827, end: 20200827

REACTIONS (4)
  - Staphylococcal infection [Unknown]
  - Sepsis [Unknown]
  - Interstitial lung disease [Recovered/Resolved]
  - Systemic candida [Unknown]

NARRATIVE: CASE EVENT DATE: 2020
